FAERS Safety Report 24156470 (Version 1)
Quarter: 2024Q3

REPORT INFORMATION
  Report Type: Spontaneous
  Country: GB (occurrence: GB)
  Receive Date: 20240731
  Receipt Date: 20240731
  Transmission Date: 20241017
  Serious: Yes (Other)
  Sender: TORRENT
  Company Number: None

PATIENT
  Sex: Male

DRUGS (1)
  1. SILDENAFIL [Suspect]
     Active Substance: SILDENAFIL
     Indication: Erectile dysfunction
     Dosage: 50MG WHEN NEEDED
     Route: 065
     Dates: end: 20240709

REACTIONS (1)
  - Vasculitis [Recovered/Resolved with Sequelae]

NARRATIVE: CASE EVENT DATE: 20240709
